FAERS Safety Report 5500760-2 (Version None)
Quarter: 2007Q4

REPORT INFORMATION
  Report Type: 
  Country: None (occurrence: None)
  Receive Date: 20071029
  Receipt Date: 20071016
  Transmission Date: 20080405
  Serious: Yes (Death)
  Sender: FDA-Public Use
  Company Number: JP-ROCHE-511394

PATIENT
  Age: 52 Year
  Sex: Female

DRUGS (20)
  1. XELODA [Suspect]
     Indication: BREAST CANCER METASTATIC
     Dosage: 3 WEEKS ADMINISTRATION, FOLLOWED BY 1 WEEK REST
     Route: 048
     Dates: start: 20070508, end: 20070528
  2. XELODA [Suspect]
     Dosage: 2 WEEKS ADMINISTRATION, FOLLOWED BY 1 WEEK REST
     Route: 048
     Dates: start: 20070612, end: 20070625
  3. NAVELBINE [Suspect]
     Indication: BREAST CANCER METASTATIC
     Dosage: GENERIC NAME REPORTED AS VINORELBINE DITARTRATE.
     Route: 041
     Dates: start: 20070612, end: 20070619
  4. NAVELBINE [Suspect]
     Route: 041
     Dates: start: 20070703, end: 20070703
  5. NOLVADEX [Concomitant]
     Dosage: GENERIC REPORTED: TAMOXIFEN CITRATE
     Route: 048
     Dates: start: 20061003
  6. METHYCOBAL [Concomitant]
     Route: 048
     Dates: start: 20061016
  7. METHYCOBAL [Concomitant]
     Route: 048
     Dates: start: 20061211
  8. METHYCOBAL [Concomitant]
     Route: 048
     Dates: start: 20070205
  9. METHYCOBAL [Concomitant]
     Route: 048
     Dates: start: 20070326
  10. METHYCOBAL [Concomitant]
     Route: 048
     Dates: start: 20070528
  11. INDOMETHACIN [Concomitant]
     Dosage: DRUG NAME REPORTED: LACTION; FORM: TAPE
     Route: 061
     Dates: start: 20061211
  12. ARIMIDEX [Concomitant]
     Route: 048
     Dates: start: 20061219
  13. ARIMIDEX [Concomitant]
     Route: 048
     Dates: start: 20070327
  14. ARIMIDEX [Concomitant]
     Route: 048
     Dates: start: 20070710
  15. ZOMETA [Concomitant]
     Route: 041
     Dates: start: 20070508, end: 20070703
  16. LOXONIN [Concomitant]
     Route: 048
     Dates: start: 20070619
  17. LOXONIN [Concomitant]
     Route: 048
     Dates: start: 20070713
  18. APLACE [Concomitant]
     Route: 048
     Dates: start: 20070619
  19. APLACE [Concomitant]
     Route: 048
     Dates: start: 20070713
  20. FLURBIPROFEN [Concomitant]
     Dosage: DRUG NAME REPORTED: STAYBAN; FORM: TAPE
     Route: 061
     Dates: start: 20070703

REACTIONS (5)
  - DIALYSIS [None]
  - EYE PAIN [None]
  - HEADACHE [None]
  - PYREXIA [None]
  - RENAL FAILURE ACUTE [None]
